FAERS Safety Report 18389298 (Version 1)
Quarter: 2020Q4

REPORT INFORMATION
  Report Type: Spontaneous
  Country: US (occurrence: US)
  Receive Date: 20201015
  Receipt Date: 20201015
  Transmission Date: 20210114
  Serious: No
  Sender: FDA-Public Use
  Company Number: NVSC2020US278535

PATIENT

DRUGS (1)
  1. VOLTAREN [Suspect]
     Active Substance: DICLOFENAC SODIUM
     Indication: ARTHRITIS
     Dosage: UNK, USE 3 OR 4 TIMES A DAY
     Route: 065
     Dates: start: 202009

REACTIONS (1)
  - Product administered at inappropriate site [Unknown]

NARRATIVE: CASE EVENT DATE: 202009
